FAERS Safety Report 17131323 (Version 3)
Quarter: 2020Q1

REPORT INFORMATION
  Report Type: Report from Study
  Country: US (occurrence: US)
  Receive Date: 20191209
  Receipt Date: 20200121
  Transmission Date: 20200409
  Serious: No
  Sender: FDA-Public Use
  Company Number: NVSC2019US063033

PATIENT
  Sex: Female

DRUGS (1)
  1. PIQRAY [Suspect]
     Active Substance: ALPELISIB
     Indication: PRODUCT USED FOR UNKNOWN INDICATION
     Route: 048

REACTIONS (6)
  - Oral discomfort [Unknown]
  - Weight decreased [Unknown]
  - Fatigue [Unknown]
  - Stomatitis [Unknown]
  - Blood glucose increased [Unknown]
  - Diarrhoea [Unknown]
